FAERS Safety Report 13782380 (Version 1)
Quarter: 2017Q3

REPORT INFORMATION
  Report Type: Spontaneous
  Country: IL (occurrence: IL)
  Receive Date: 20170724
  Receipt Date: 20170724
  Transmission Date: 20171127
  Serious: Yes (Other)
  Sender: FDA-Public Use
  Company Number: IL-PFIZER INC-2017310414

PATIENT
  Age: 51 Year
  Sex: Male

DRUGS (1)
  1. ELELYSO [Suspect]
     Active Substance: TALIGLUCERASE ALFA
     Indication: GAUCHER^S DISEASE
     Dosage: 1200/1000 UNITS ALTERNATELY ,EVERY TWO WEEKS
     Route: 042

REACTIONS (4)
  - Faeces soft [Unknown]
  - Nephrolithiasis [Unknown]
  - Gastroenteritis viral [Unknown]
  - Abdominal pain upper [Unknown]

NARRATIVE: CASE EVENT DATE: 20170713
